FAERS Safety Report 8933050 (Version 2)
Quarter: 2015Q3

REPORT INFORMATION
  Report Type: Report from Study
  Country: US (occurrence: US)
  Receive Date: 20121128
  Receipt Date: 20150728
  Transmission Date: 20151125
  Serious: Yes (Hospitalization)
  Sender: FDA-Public Use
  Company Number: US-MPIJNJ-2012-08288

PATIENT
  Age: 80 Year
  Sex: Male

DRUGS (1)
  1. VELCADE [Suspect]
     Active Substance: BORTEZOMIB
     Indication: PLASMA CELL MYELOMA
     Dosage: 2.8 MG, UNK
     Route: 042
     Dates: start: 20111122

REACTIONS (1)
  - Gouty arthritis [Unknown]

NARRATIVE: CASE EVENT DATE: 20120710
